FAERS Safety Report 10529144 (Version 1)
Quarter: 2014Q4

REPORT INFORMATION
  Report Type: Spontaneous
  Country: CH (occurrence: CH)
  Receive Date: 20141020
  Receipt Date: 20141020
  Transmission Date: 20150528
  Serious: Yes (Other)
  Sender: FDA-Public Use
  Company Number: CH-ALLERGAN-1422060US

PATIENT
  Age: 51 Year
  Sex: Female

DRUGS (11)
  1. DIALVIT [Concomitant]
     Dosage: UNK
     Dates: start: 20131119
  2. ROCALTROL [Concomitant]
     Active Substance: CALCITRIOL
     Dosage: UNK
     Dates: start: 20130322
  3. TROSPIUM CHLORIDE UNK [Suspect]
     Active Substance: TROSPIUM CHLORIDE
     Indication: HYPERTONIC BLADDER
     Dosage: 20 MG, Q12H
     Route: 048
     Dates: start: 20140722, end: 20140727
  4. XYZAL [Suspect]
     Active Substance: LEVOCETIRIZINE DIHYDROCHLORIDE
     Indication: EYE PRURITUS
     Dosage: 5 MG, UNK
     Dates: start: 20140724, end: 20140728
  5. ZANIDIP [Suspect]
     Active Substance: LERCANIDIPINE HYDROCHLORIDE
     Indication: HYPERTENSION
     Dosage: 10 MG, QD
     Route: 048
     Dates: start: 20140714
  6. HALDOL [Concomitant]
     Active Substance: HALOPERIDOL
     Dosage: UNK
     Dates: start: 20130122
  7. TORASEMIDE SANDOZ [Concomitant]
     Dosage: UNK
     Dates: start: 20130202
  8. FERINJECT [Concomitant]
     Active Substance: FERRIC CARBOXYMALTOSE
     Dosage: UNK
     Dates: start: 20140214, end: 20140814
  9. DILATREND [Concomitant]
     Active Substance: CARVEDILOL
     Dosage: UNK
     Dates: start: 20140509
  10. ARANESP [Concomitant]
     Active Substance: DARBEPOETIN ALFA
     Dosage: UNK
     Dates: start: 20140714, end: 20140817
  11. ESTRADOT [Suspect]
     Active Substance: ESTRADIOL
     Indication: OESTROGEN REPLACEMENT THERAPY
     Dosage: 1 DF, UNK
     Route: 061
     Dates: start: 20140722

REACTIONS (5)
  - Hypersensitivity [Recovered/Resolved]
  - Eyelid oedema [Recovered/Resolved]
  - Angioedema [Recovered/Resolved]
  - Eye pruritus [Recovered/Resolved]
  - Face oedema [Recovered/Resolved]

NARRATIVE: CASE EVENT DATE: 20140723
